FAERS Safety Report 5320886-6 (Version None)
Quarter: 2007Q2

REPORT INFORMATION
  Report Type: 
  Country: None (occurrence: None)
  Receive Date: 20070504
  Receipt Date: 20070424
  Transmission Date: 20071010
  Serious: Yes (Other)
  Sender: FDA-Public Use
  Company Number: GXKR2007GB03769

PATIENT
  Age: 76 Year
  Sex: Male

DRUGS (1)
  1. AMIODARONE HCL [Suspect]
     Indication: CARDIAC FAILURE

REACTIONS (4)
  - CORNEAL DEPOSITS [None]
  - DEPOSIT EYE [None]
  - KERATOPATHY [None]
  - PHOTOPHOBIA [None]
